FAERS Safety Report 6737748-X (Version None)
Quarter: 2010Q2

REPORT INFORMATION
  Report Type: 
  Country: None (occurrence: None)
  Receive Date: 20100524
  Receipt Date: 20100518
  Transmission Date: 20101027
  Serious: Yes (Life-Threatening, Hospitalization, Other)
  Sender: FDA-Public Use
  Company Number: PHHY2010JP26875

PATIENT
  Sex: Female
  Weight: 53 kg

DRUGS (12)
  1. GLEEVEC [Suspect]
     Indication: ACUTE LYMPHOCYTIC LEUKAEMIA
     Dosage: 600 MG DAILY
     Route: 048
     Dates: start: 20091119, end: 20091222
  2. GLEEVEC [Interacting]
     Dosage: 100 MG DAILY
     Route: 048
     Dates: start: 20100208, end: 20100304
  3. GLEEVEC [Interacting]
     Dosage: 200 MG DAILY
     Route: 048
     Dates: start: 20100305, end: 20100418
  4. GLEEVEC [Interacting]
     Dosage: 300 MG DAILY
     Route: 048
     Dates: start: 20100419, end: 20100425
  5. GLEEVEC [Interacting]
     Dosage: 100 MG DAILY
     Route: 048
     Dates: start: 20100509
  6. DEPAKENE [Interacting]
     Indication: SCHIZOPHRENIA
     Dosage: 300 MG DAILY
     Route: 048
     Dates: start: 20100201
  7. RISPERDAL [Interacting]
     Indication: SCHIZOPHRENIA
     Dosage: 6 MG DAILY
     Route: 048
     Dates: start: 20100201
  8. CYANOCOBALAMIN [Concomitant]
     Route: 048
  9. GOSHAJINKIGAN [Concomitant]
     Route: 048
  10. AKINETON [Concomitant]
     Route: 048
  11. LENDORMIN [Concomitant]
  12. ROHYPNOL [Concomitant]

REACTIONS (6)
  - COUGH [None]
  - DECREASED APPETITE [None]
  - DRUG INTERACTION [None]
  - HYPOAESTHESIA [None]
  - INTERSTITIAL LUNG DISEASE [None]
  - NEUROPATHY PERIPHERAL [None]
